FAERS Safety Report 23853595 (Version 2)
Quarter: 2024Q4

REPORT INFORMATION
  Report Type: Spontaneous
  Country: DE (occurrence: DE)
  Receive Date: 20240514
  Receipt Date: 20241119
  Transmission Date: 20250115
  Serious: Yes (Other)
  Sender: BOEHRINGER INGELHEIM
  Company Number: DE-BoehringerIngelheim-2024-BI-027131

PATIENT
  Age: 35 Year
  Sex: Female

DRUGS (16)
  1. JARDIANCE [Suspect]
     Active Substance: EMPAGLIFLOZIN
     Indication: Type 2 diabetes mellitus
     Dates: start: 202011, end: 202111
  2. JARDIANCE [Suspect]
     Active Substance: EMPAGLIFLOZIN
     Dosage: FORM STRENGTH: 25 MILLIGRAM
     Dates: start: 202111, end: 202212
  3. Toujeo 300 [Concomitant]
     Indication: Type 2 diabetes mellitus
     Dates: start: 202008, end: 202011
  4. Toujeo 300 [Concomitant]
     Dates: start: 202011
  5. Toujeo 300 [Concomitant]
     Dates: start: 202007, end: 202008
  6. Humalog 200 [Concomitant]
     Indication: Type 2 diabetes mellitus
     Dosage: 8-4-6 IU
     Dates: start: 202008, end: 202011
  7. Humalog 200 [Concomitant]
     Dosage: ACCORDING TO CARBOHYDRATE EXCHANGE FACTOR
     Dates: start: 202011, end: 202111
  8. Humalog 200 [Concomitant]
     Dosage: ACCORDING TO CARBOHYDRATE EXCHANGE FACTOR?PRE-BOLUS AROUND 5:00 A.M. DUE TO TWILIGHT PHENOMENON
     Dates: start: 202111, end: 202212
  9. Humalog 200 [Concomitant]
     Dosage: 3/1 IND THE MORNING AND 1/1 IN THE EVENING
     Dates: start: 202212
  10. OZEMPIC [Concomitant]
     Active Substance: SEMAGLUTIDE
     Indication: Type 2 diabetes mellitus
     Dates: start: 202011, end: 202111
  11. VICTOZA [Concomitant]
     Active Substance: LIRAGLUTIDE
     Indication: Type 2 diabetes mellitus
     Dates: start: 202111
  12. Tresiba 200 [Concomitant]
     Indication: Type 2 diabetes mellitus
     Dates: start: 202111, end: 202212
  13. Tresiba 200 [Concomitant]
     Dates: start: 202212
  14. PROTAPHANE [Concomitant]
     Active Substance: INSULIN HUMAN
     Indication: Type 2 diabetes mellitus
     Dates: start: 202203, end: 202212
  15. PROTAPHANE [Concomitant]
     Active Substance: INSULIN HUMAN
     Dates: start: 202212
  16. Siofor XR 1000 [Concomitant]
     Indication: Type 2 diabetes mellitus
     Dates: start: 202212

REACTIONS (8)
  - Mental disorder [Unknown]
  - Smear cervix abnormal [Unknown]
  - Abscess [Unknown]
  - Weight increased [Unknown]
  - White blood cell count increased [Recovered/Resolved]
  - Nausea [Unknown]
  - Weight increased [Unknown]
  - Glycosylated haemoglobin increased [Recovered/Resolved]

NARRATIVE: CASE EVENT DATE: 20211101
